FAERS Safety Report 16743578 (Version 4)
Quarter: 2019Q4

REPORT INFORMATION
  Report Type: Report from Study
  Country: US (occurrence: US)
  Receive Date: 20190827
  Receipt Date: 20191129
  Transmission Date: 20200122
  Serious: No
  Sender: FDA-Public Use
  Company Number: PHEH2019US035417

PATIENT
  Age: 60 Year
  Sex: Male

DRUGS (4)
  1. COSENTYX [Suspect]
     Active Substance: SECUKINUMAB
     Dosage: 150 MG/KG, QMO
     Route: 058
     Dates: start: 20190801
  2. COSENTYX [Suspect]
     Active Substance: SECUKINUMAB
     Dosage: 150 MG/KG, QW
     Route: 058
     Dates: start: 20190623
  3. COSENTYX [Suspect]
     Active Substance: SECUKINUMAB
     Indication: PSORIATIC ARTHROPATHY
     Dosage: UNK
     Route: 058
     Dates: start: 20190601
  4. COSENTYX [Suspect]
     Active Substance: SECUKINUMAB
     Dosage: 300 OT (MCG/KG)
     Route: 058
     Dates: end: 20190909

REACTIONS (2)
  - Abscess oral [Recovering/Resolving]
  - Nasopharyngitis [Unknown]

NARRATIVE: CASE EVENT DATE: 20190829
